FAERS Safety Report 12237261 (Version 3)
Quarter: 2016Q2

REPORT INFORMATION
  Report Type: Spontaneous
  Country: US (occurrence: US)
  Receive Date: 20160405
  Receipt Date: 20160606
  Transmission Date: 20160815
  Serious: Yes (Hospitalization)
  Sender: FDA-Public Use
  Company Number: US-ENDO PHARMACEUTICALS INC.-2016-002250

PATIENT
  Sex: Male
  Weight: 113.5 kg

DRUGS (5)
  1. OPANA ER [Suspect]
     Active Substance: OXYMORPHONE HYDROCHLORIDE
     Indication: PAIN IN EXTREMITY
     Route: 065
     Dates: start: 201502, end: 201506
  2. EPZICOM [Concomitant]
     Active Substance: ABACAVIR SULFATE\LAMIVUDINE
     Indication: HIV TEST POSITIVE
     Route: 065
  3. OPANA ER [Suspect]
     Active Substance: OXYMORPHONE HYDROCHLORIDE
     Indication: BACK PAIN
  4. SUSTIVA [Concomitant]
     Active Substance: EFAVIRENZ
     Indication: HIV TEST POSITIVE
     Route: 065
  5. TRIUMEQ [Concomitant]
     Active Substance: ABACAVIR SULFATE\DOLUTEGRAVIR SODIUM\LAMIVUDINE
     Indication: HIV TEST POSITIVE
     Route: 048
     Dates: start: 201511

REACTIONS (5)
  - Drug dose omission [Recovered/Resolved]
  - Paralysis [Unknown]
  - Drug ineffective [Recovered/Resolved]
  - Weight increased [Unknown]
  - Chronic obstructive pulmonary disease [Not Recovered/Not Resolved]

NARRATIVE: CASE EVENT DATE: 2015
